FAERS Safety Report 14756917 (Version 1)
Quarter: 2018Q2

REPORT INFORMATION
  Report Type: Spontaneous
  Country: US (occurrence: US)
  Receive Date: 20180413
  Receipt Date: 20180413
  Transmission Date: 20180711
  Serious: No
  Sender: FDA-Public Use
  Company Number: US-ASTRAZENECA-2018SE46291

PATIENT
  Sex: Female

DRUGS (1)
  1. RHINOCORT ALLERGY [Suspect]
     Active Substance: BUDESONIDE
     Indication: MULTIPLE ALLERGIES
     Dosage: DOSING AND FREQUENCY UNKNOWN
     Route: 045

REACTIONS (2)
  - Dizziness [Unknown]
  - Drug ineffective [Unknown]
